FAERS Safety Report 8118145-1 (Version None)
Quarter: 2011Q4

REPORT INFORMATION
  Report Type: 
  Country: None (occurrence: None)
  Receive Date: 20111227
  Receipt Date: 20111011
  Transmission Date: 20120403
  Serious: No
  Sender: FDA-Public Use
  Company Number: PHEH2011US06605

PATIENT
  Age: 39 Year
  Sex: Female

DRUGS (9)
  1. LEXAPRO [Concomitant]
  2. ACAQI [Concomitant]
  3. VITAMIN D [Concomitant]
  4. VITAMIN E [Concomitant]
  5. MEGA RED [Concomitant]
  6. MULTIVITAMINS (ASCORBIC ACID, ERGOCALCIFEROL, FOLIC ACID, NICOTINAMIDE [Concomitant]
  7. GILENYA [Suspect]
     Dosage: 0.5 MG, QD, ORAL
     Route: 048
  8. SUDAFED 12 HOUR [Concomitant]
  9. OMEPRAZOLE [Concomitant]

REACTIONS (2)
  - PARAESTHESIA [None]
  - HYPOAESTHESIA [None]
